FAERS Safety Report 23436563 (Version 1)
Quarter: 2024Q1

REPORT INFORMATION
  Report Type: Spontaneous
  Country: US (occurrence: None)
  Receive Date: 20240124
  Receipt Date: 20240124
  Transmission Date: 20240409
  Serious: No
  Sender: FDA-Public Use
  Company Number: US-ARIS GLOBAL-SUP202311-004519

PATIENT
  Age: 21 Year
  Sex: Male

DRUGS (9)
  1. QELBREE [Suspect]
     Active Substance: VILOXAZINE HYDROCHLORIDE
     Indication: Attention deficit hyperactivity disorder
     Dosage: 200MG
     Dates: start: 20230702
  2. QELBREE [Suspect]
     Active Substance: VILOXAZINE HYDROCHLORIDE
     Dosage: 400MG
     Dates: start: 20230713, end: 20230717
  3. VYVANSE [Concomitant]
     Active Substance: LISDEXAMFETAMINE DIMESYLATE
     Indication: Attention deficit hyperactivity disorder
  4. ADDERALL [Concomitant]
     Active Substance: AMPHETAMINE ASPARTATE\AMPHETAMINE SULFATE\DEXTROAMPHETAMINE SACCHARATE\DEXTROAMPHETAMINE SULFATE
     Indication: Attention deficit hyperactivity disorder
  5. BUPROPION [Concomitant]
     Active Substance: BUPROPION
     Indication: Depression
  6. MIRTAZAPINE [Concomitant]
     Active Substance: MIRTAZAPINE
     Indication: Anxiety
  7. TYLENOL [Concomitant]
     Active Substance: ACETAMINOPHEN
     Dosage: NOT PROVIDED
  8. IBUPROFEN [Concomitant]
     Active Substance: IBUPROFEN
     Dosage: NOT PROVIDED
  9. ALEVE [Concomitant]
     Active Substance: NAPROXEN SODIUM
     Dosage: NOT PROVIDED

REACTIONS (3)
  - Headache [Recovered/Resolved]
  - Vomiting [Recovered/Resolved]
  - Nausea [Recovered/Resolved]

NARRATIVE: CASE EVENT DATE: 20230701
